FAERS Safety Report 7128338-8 (Version None)
Quarter: 2010Q4

REPORT INFORMATION
  Report Type: 
  Country: None (occurrence: None)
  Receive Date: 20101130
  Receipt Date: 20101116
  Transmission Date: 20110411
  Serious: Yes (Other)
  Sender: FDA-Public Use
  Company Number: CN-NOVOPROD-318875

PATIENT
  Age: 56 Year
  Sex: Male
  Weight: 57 kg

DRUGS (2)
  1. NOVOLOG MIX 70/30 [Suspect]
     Indication: TYPE 2 DIABETES MELLITUS
     Dosage: 12 U IN THE MORNING AND 10U AT NIGHT
     Dates: start: 20101025, end: 20101030
  2. NOVOLOG MIX 70/30 [Suspect]
     Dosage: 12 U IN THE MORNING AND 10U AT NIGHT

REACTIONS (4)
  - ABDOMINAL DISTENSION [None]
  - DIARRHOEA [None]
  - FAECAL INCONTINENCE [None]
  - PRODUCT QUALITY ISSUE [None]
